FAERS Safety Report 17837155 (Version 1)
Quarter: 2020Q2

REPORT INFORMATION
  Report Type: Spontaneous
  Country: UA (occurrence: UA)
  Receive Date: 20200529
  Receipt Date: 20200529
  Transmission Date: 20200714
  Serious: Yes (Other)
  Sender: FDA-Public Use
  Company Number: UA-DRREDDYS-GPV/UKR/20/0123266

PATIENT

DRUGS (2)
  1. OMEZ [Suspect]
     Active Substance: OMEPRAZOLE
     Indication: CHRONIC GASTRITIS
  2. OMEZ [Suspect]
     Active Substance: OMEPRAZOLE
     Indication: PEPTIC ULCER

REACTIONS (1)
  - Drug ineffective [Unknown]
